FAERS Safety Report 4431101-X (Version None)
Quarter: 2004Q3

REPORT INFORMATION
  Report Type: 
  Country: None (occurrence: None)
  Receive Date: 20040817
  Receipt Date: 20040804
  Transmission Date: 20050211
  Serious: Yes (Hospitalization)
  Sender: FDA-Public Use
  Company Number: RENA-11083

PATIENT
  Age: 49 Year
  Sex: Male
  Weight: 57 kg

DRUGS (4)
  1. RENAGEL [Suspect]
     Indication: HYPERPHOSPHATAEMIA
     Dosage: 0.5 G TID PO
     Route: 048
     Dates: start: 20040514, end: 20040521
  2. ACETYLSALICYLIC ACID [Concomitant]
  3. LOSARTAN POTASSIUM [Concomitant]
  4. CALCITRIOL [Concomitant]

REACTIONS (3)
  - DIVERTICULITIS [None]
  - PERITONEAL DISORDER [None]
  - SCAR [None]
